FAERS Safety Report 7338975-3 (Version None)
Quarter: 2011Q1

REPORT INFORMATION
  Report Type: 
  Country: None (occurrence: None)
  Receive Date: 20110308
  Receipt Date: 20110223
  Transmission Date: 20110831
  Serious: Yes (Hospitalization, Disabling, Other)
  Sender: FDA-Public Use
  Company Number: CA-ELI_LILLY_AND_COMPANY-CA201102006505

PATIENT
  Sex: Female

DRUGS (29)
  1. ZYPREXA [Suspect]
     Indication: SCHIZOPHRENIA
     Dosage: 5 MG, EACH EVENING
     Route: 048
     Dates: start: 19991027
  2. RISPERDAL [Concomitant]
     Dosage: 1 MG, DAILY (1/D)
     Route: 048
  3. ALTACE [Concomitant]
     Dosage: 10 MG, DAILY (1/D)
  4. ADALAT CC [Concomitant]
     Dosage: 30 MG, DAILY (1/D)
  5. LORAZEPAM [Concomitant]
     Dosage: 0.5 MG, AS NEEDED
     Route: 060
  6. ORAP [Concomitant]
     Dosage: 4 MG, EACH EVENING
  7. MODECATE [Concomitant]
     Dosage: 1 D/F, UNK
  8. RISPERDAL [Concomitant]
     Dosage: 0.5 MG, DAILY (1/D)
  9. RISPERDAL [Concomitant]
     Dosage: 1 MG, DAILY (1/D)
  10. HYDROCHLOROTHIAZIDE [Concomitant]
     Dosage: 50 MG, DAILY (1/D)
     Route: 048
  11. ALTACE [Concomitant]
     Dosage: 2.5 MG, DAILY (1/D)
     Route: 048
  12. ALTACE [Concomitant]
     Dosage: 5 MG, DAILY (1/D)
  13. AVANDIA [Concomitant]
     Dosage: 8 MG, DAILY (1/D)
  14. ZYPREXA [Suspect]
     Dosage: 5 MG, 2/D
  15. RISPERDAL [Concomitant]
     Dosage: 1 MG, 2/D
     Route: 048
  16. MONOPRIL [Concomitant]
     Dosage: 10 MG, DAILY (1/D)
     Route: 048
  17. INDAPAMIDE [Concomitant]
     Dosage: 2.5 MG, DAILY (1/D)
     Route: 048
  18. ZYPREXA [Suspect]
     Dosage: 7.5 MG, DAILY (1/D)
     Route: 048
  19. LORAZEPAM [Concomitant]
     Dosage: 1 MG, 3/D
     Route: 048
  20. ORAP [Concomitant]
     Dosage: 4 MG, EACH EVENING
     Route: 048
  21. RISPERDAL [Concomitant]
     Dosage: 4 MG, UNK
  22. ZYPREXA [Suspect]
     Dosage: 5 MG, DAILY (1/D)
  23. ZYPREXA [Suspect]
     Dosage: 5 MG, EACH EVENING
  24. BENZTROPINE MESYLATE [Concomitant]
     Dosage: 2 MG, EACH EVENING
     Route: 048
  25. FLURAZEPAM [Concomitant]
     Dosage: 30 MG, EACH EVENING
     Route: 048
  26. ZYPREXA [Suspect]
     Dosage: 7.5 MG, DAILY (1/D)
  27. HYDROCHLOROTHIAZIDE [Concomitant]
     Dosage: 25 MG, DAILY (1/D)
  28. RISPERDAL [Concomitant]
     Dosage: 1.5 MG, DAILY (1/D)
  29. AVANDIA [Concomitant]
     Dosage: 4 MG, DAILY (1/D)
     Route: 048

REACTIONS (3)
  - BLINDNESS [None]
  - DIABETIC ULCER [None]
  - DIABETES MELLITUS [None]
